FAERS Safety Report 8571071-6 (Version None)
Quarter: 2012Q3

REPORT INFORMATION
  Report Type: 
  Country: None (occurrence: None)
  Receive Date: 20120730
  Receipt Date: 20120730
  Transmission Date: 20120928
  Serious: Yes (Hospitalization)
  Sender: FDA-Public Use
  Company Number: None

PATIENT
  Age: 65 Year
  Sex: Male
  Weight: 165.6 kg

DRUGS (1)
  1. DALFAMPRIDINE 10MG ACORDA THERAPEUTICS [Suspect]
     Indication: MULTIPLE SCLEROSIS
     Dosage: 10MG TWICE DAILY PO
     Route: 048
     Dates: start: 20110524, end: 20120521

REACTIONS (1)
  - CONVULSION [None]
